FAERS Safety Report 9816672 (Version 3)
Quarter: 2014Q3

REPORT INFORMATION
  Report Type: Spontaneous
  Country: US (occurrence: US)
  Receive Date: 20140114
  Receipt Date: 20140905
  Transmission Date: 20150326
  Serious: Yes (Hospitalization, Other)
  Sender: FDA-Public Use
  Company Number: US-009507513-1401USA002663

PATIENT
  Sex: Female
  Weight: 73.16 kg

DRUGS (2)
  1. NUVARING [Suspect]
     Active Substance: ETHINYL ESTRADIOL\ETONOGESTREL
     Indication: CONTRACEPTION
     Dosage: UNK
     Route: 067
     Dates: start: 20100420
  2. NUVARING [Suspect]
     Active Substance: ETHINYL ESTRADIOL\ETONOGESTREL
     Dosage: UNK
     Route: 067
     Dates: start: 2009, end: 201003

REACTIONS (7)
  - Lung infiltration [Unknown]
  - Inappropriate schedule of drug administration [Recovered/Resolved]
  - Eye injury [Unknown]
  - Eye operation [Unknown]
  - Pulmonary embolism [Unknown]
  - Vascular injury [Unknown]
  - Leukocytosis [Unknown]

NARRATIVE: CASE EVENT DATE: 201003
